FAERS Safety Report 23020472 (Version 1)
Quarter: 2023Q4

REPORT INFORMATION
  Report Type: Other
  Country: None (occurrence: US)
  Receive Date: 20231003
  Receipt Date: 20231003
  Transmission Date: 20240110
  Serious: Yes (Hospitalization, Other)
  Sender: FDA-Public Use
  Company Number: US-Marksans Pharma Limited-2146593

PATIENT
  Age: 78 Year
  Sex: Female

DRUGS (9)
  1. GABAPENTIN [Suspect]
     Active Substance: GABAPENTIN
     Indication: Neuralgia
     Route: 065
  2. FUROSEMIDE [Suspect]
     Active Substance: FUROSEMIDE
     Route: 065
  3. LISINOPRIL [Suspect]
     Active Substance: LISINOPRIL
     Route: 065
  4. SIMVASTATIN [Concomitant]
     Active Substance: SIMVASTATIN
     Route: 065
  5. METFORMIN [Concomitant]
     Active Substance: METFORMIN HYDROCHLORIDE
     Route: 065
  6. CITALOPRAM [Concomitant]
     Active Substance: CITALOPRAM HYDROBROMIDE
     Route: 065
  7. fluticasone proprionate inhaler [Concomitant]
     Route: 065
  8. inhaled albuterol [Concomitant]
     Route: 065
  9. METOLAZONE [Concomitant]
     Active Substance: METOLAZONE
     Route: 065

REACTIONS (6)
  - Tremor [Unknown]
  - Myoclonus [Recovered/Resolved]
  - Acute kidney injury [Recovered/Resolved]
  - Hyperkalaemia [Recovered/Resolved]
  - Azotaemia [Recovered/Resolved]
  - Off label use [Unknown]
